FAERS Safety Report 20574131 (Version 4)
Quarter: 2022Q1

REPORT INFORMATION
  Report Type: Spontaneous
  Country: US (occurrence: US)
  Receive Date: 20220309
  Receipt Date: 20220331
  Transmission Date: 20220423
  Serious: No
  Sender: FDA-Public Use
  Company Number: US-ELI_LILLY_AND_COMPANY-US202203001772

PATIENT
  Age: 49 Year
  Sex: Female

DRUGS (11)
  1. ADCIRCA [Suspect]
     Active Substance: TADALAFIL
     Indication: Pulmonary hypertension
     Dosage: UNK UNK, UNKNOWN
     Route: 065
     Dates: start: 20220212
  2. ADCIRCA [Suspect]
     Active Substance: TADALAFIL
     Dosage: 40 MG, DAILY
     Route: 065
     Dates: start: 20220211
  3. AMBRISENTAN [Suspect]
     Active Substance: AMBRISENTAN
     Indication: Pulmonary hypertension
     Dosage: 10 MG, DAILY
     Route: 065
     Dates: start: 201702
  4. AMBRISENTAN [Suspect]
     Active Substance: AMBRISENTAN
     Dosage: 10 MG, DAILY
     Route: 065
     Dates: start: 20191022
  5. AMBRISENTAN [Suspect]
     Active Substance: AMBRISENTAN
     Dosage: 10 MG, DAILY
     Route: 065
     Dates: start: 20191023
  6. TYVASO [Suspect]
     Active Substance: TREPROSTINIL
     Indication: Pulmonary arterial hypertension
     Dosage: 0.29 MG, QID
     Route: 065
     Dates: start: 20220224
  7. TYVASO [Suspect]
     Active Substance: TREPROSTINIL
     Dosage: 0.6 MG, QID
     Route: 065
     Dates: start: 20220224
  8. TYVASO [Suspect]
     Active Substance: TREPROSTINIL
     Dosage: 72 UG, QID (12 BREATHES)
     Route: 065
     Dates: start: 20220224
  9. TYVASO [Suspect]
     Active Substance: TREPROSTINIL
     Dosage: 108 UG, QID
     Route: 065
     Dates: start: 20220224
  10. VELETRI [Suspect]
     Active Substance: EPOPROSTENOL
     Indication: Pulmonary arterial hypertension
     Dosage: 10 NG, Q1MINUTE
     Route: 065
     Dates: start: 20210630
  11. VELETRI [Suspect]
     Active Substance: EPOPROSTENOL
     Dosage: 10 NG, Q1MINUTE
     Route: 065
     Dates: start: 20210701

REACTIONS (20)
  - Lung disorder [Unknown]
  - Paraesthesia [Unknown]
  - Chills [Unknown]
  - Cough [Unknown]
  - Disturbance in attention [Unknown]
  - Aphasia [Unknown]
  - Anxiety [Unknown]
  - Stress [Unknown]
  - Muscle spasms [Unknown]
  - Eczema [Unknown]
  - Heart rate increased [Not Recovered/Not Resolved]
  - Chest discomfort [Not Recovered/Not Resolved]
  - Palpitations [Unknown]
  - Pain in extremity [Unknown]
  - Peripheral swelling [Unknown]
  - Headache [Unknown]
  - Nausea [Recovered/Resolved]
  - Dizziness [Unknown]
  - Throat irritation [Not Recovered/Not Resolved]
  - Device dislocation [Unknown]

NARRATIVE: CASE EVENT DATE: 20220201
